FAERS Safety Report 10418232 (Version 1)
Quarter: 2014Q3

REPORT INFORMATION
  Report Type: Spontaneous
  Country: US (occurrence: None)
  Receive Date: 20140828
  Receipt Date: 20140828
  Transmission Date: 20150326
  Serious: Yes (Life-Threatening, Hospitalization)
  Sender: FDA-Public Use
  Company Number: None

PATIENT
  Age: 48 Year
  Sex: Male
  Weight: 75.1 kg

DRUGS (1)
  1. HYDROCHLOROTHIAZIDE/LISINOPRIL [Suspect]
     Active Substance: HYDROCHLOROTHIAZIDE\LISINOPRIL
     Indication: HYPERTENSION
     Dosage: 1 TAB
     Route: 048
     Dates: start: 20140425, end: 20140426

REACTIONS (5)
  - Swelling face [None]
  - Post procedural complication [None]
  - Anaphylactic shock [None]
  - Respiratory failure [None]
  - Respiratory disorder [None]

NARRATIVE: CASE EVENT DATE: 20140426
